FAERS Safety Report 6115842-4 (Version None)
Quarter: 2009Q1

REPORT INFORMATION
  Report Type: 
  Country: None (occurrence: None)
  Receive Date: 20090311
  Receipt Date: 20090303
  Transmission Date: 20090719
  Serious: Yes (Other)
  Sender: FDA-Public Use
  Company Number: 2009-00634

PATIENT
  Age: 61 Year
  Sex: Male
  Weight: 80 kg

DRUGS (2)
  1. VELCADE [Suspect]
     Indication: RENAL CANCER METASTATIC
     Dosage: 1.3 MG//M2, IV BOLUS
     Route: 040
     Dates: start: 20090210, end: 20090213
  2. 17-AAG (17ALLYLAMINO-17-DEMETHOXYGELDANAMYCIN) INFUSION [Suspect]
     Indication: RENAL CANCER METASTATIC
     Dosage: 250 MG/M2, INTRAVENOUS
     Route: 042
     Dates: start: 20090210, end: 20090213

REACTIONS (8)
  - ANOREXIA [None]
  - CHEST PAIN [None]
  - DIARRHOEA [None]
  - DYSPNOEA [None]
  - NAUSEA [None]
  - NEUROPATHY PERIPHERAL [None]
  - RASH [None]
  - VISION BLURRED [None]
